FAERS Safety Report 6606551-3 (Version None)
Quarter: 2010Q1

REPORT INFORMATION
  Report Type: 
  Country: None (occurrence: None)
  Receive Date: 20100226
  Receipt Date: 20100215
  Transmission Date: 20100710
  Serious: Yes (Other)
  Sender: FDA-Public Use
  Company Number: NO-WYE-H13807610

PATIENT
  Age: 39 Year
  Sex: Female

DRUGS (1)
  1. SOMAC [Suspect]
     Dosage: UNKNOWN
     Route: 048

REACTIONS (1)
  - ALOPECIA [None]
